FAERS Safety Report 4325609-5 (Version None)
Quarter: 2004Q1

REPORT INFORMATION
  Report Type: 
  Country: None (occurrence: None)
  Receive Date: 20040324
  Receipt Date: 20031015
  Transmission Date: 20041129
  Serious: Yes (Death)
  Sender: FDA-Public Use
  Company Number: BE-JNJFOC-20031000423

PATIENT
  Sex: Female

DRUGS (31)
  1. PROPULSID [Suspect]
     Indication: IMPAIRED GASTRIC EMPTYING
     Dosage: 10 MG,
     Dates: start: 20030909
  2. REDOMEX (AMITRIPTYLINE HYDROCHLORIDE) CAPSULES [Concomitant]
  3. TRAZOLAN (TRAZODONE HYDROCHLORIDE) [Concomitant]
  4. SOLIAN (AMISULPRIDE) [Concomitant]
  5. TRANXENE [Concomitant]
  6. XANTHIUM (THEOPHYLLINE) [Concomitant]
  7. EUPHYLLIUM (AMINOPHYLLINE) [Concomitant]
  8. LOMUDAL (CROMOGLICATE SODIUM) [Concomitant]
  9. DUOVET (DUOVENT) [Concomitant]
  10. NEURONTIN [Concomitant]
  11. TEGRETOL [Concomitant]
  12. L-THYROXYNE (LEVOTHYROXINE) [Concomitant]
  13. LYSOMUCIL (ACETYLCYSTEINE) [Concomitant]
  14. CIPRAMIL (CITALOPRAM HYDROBROMIDE) [Concomitant]
  15. DOLZAM (TRAMADOL HYDROCHLORIDE) [Concomitant]
  16. DOMINAL (PROTHIPENDYL HYDROCHLORIDE) [Concomitant]
  17. LORAMET (LORMETAZEPAM) [Concomitant]
  18. PANTOZOL (PANTOPRAZOLE SODIUM) [Concomitant]
  19. COMBIVENT [Concomitant]
  20. FERRICURE (POLYSACCHARIDE-IRON COMPLEX) [Concomitant]
  21. AREDIA [Concomitant]
  22. GLUCOBAY [Concomitant]
  23. SINTROM [Concomitant]
  24. MS CONTIN [Concomitant]
  25. TRAMADOL HCL [Concomitant]
  26. VALTRAN (VALORON N) [Concomitant]
  27. DEANXIT (DEANXIT) [Concomitant]
  28. SEDINAL (SEDINAL) [Concomitant]
  29. FLITOXIDE (FLUTICASONE) [Concomitant]
  30. INFLUVAC S (INFLUENZA VIRUS VACCINE POLYVALENT) [Concomitant]
  31. DIPIDOLOR (PIRITRAMIDE) [Concomitant]

REACTIONS (16)
  - BRONCHIAL INFECTION [None]
  - BRONCHOPNEUMONIA [None]
  - CARDIO-RESPIRATORY ARREST [None]
  - CHRONIC RESPIRATORY DISEASE [None]
  - DEPRESSION [None]
  - EMPHYSEMA [None]
  - HYPERSENSITIVITY [None]
  - HYPOGLYCAEMIA [None]
  - MALAISE [None]
  - MENTAL DISORDER [None]
  - NICOTINE DEPENDENCE [None]
  - RESPIRATORY FAILURE [None]
  - RESPIRATORY TRACT INFECTION [None]
  - SINUSITIS [None]
  - SUICIDE ATTEMPT [None]
  - VOMITING [None]
